FAERS Safety Report 20569405 (Version 1)
Quarter: 2022Q1

REPORT INFORMATION
  Report Type: Spontaneous
  Country: US (occurrence: US)
  Receive Date: 20220308
  Receipt Date: 20220308
  Transmission Date: 20220423
  Serious: No
  Sender: FDA-Public Use
  Company Number: US-JNJFOC-20220250018

PATIENT
  Age: 92 Year
  Sex: Female

DRUGS (1)
  1. UPTRAVI [Suspect]
     Active Substance: SELEXIPAG
     Indication: Product used for unknown indication
     Dosage: 800MCG ONCE IN MORNING AND 400MCG ONCE IN EVENING.
     Route: 048

REACTIONS (2)
  - Product use issue [Recovered/Resolved]
  - Off label use [Unknown]
